APPROVED DRUG PRODUCT: METHYLPREDNISOLONE
Active Ingredient: METHYLPREDNISOLONE
Strength: 4MG
Dosage Form/Route: TABLET;ORAL
Application: A040183 | Product #001 | TE Code: AB
Applicant: PH HEALTH LTD
Approved: Dec 22, 1998 | RLD: No | RS: No | Type: RX